FAERS Safety Report 5196291-2 (Version None)
Quarter: 2007Q1

REPORT INFORMATION
  Report Type: 
  Country: None (occurrence: None)
  Receive Date: 20070102
  Receipt Date: 20061225
  Transmission Date: 20070707
  Serious: Yes (Other)
  Sender: FDA-Public Use
  Company Number: JP-PFIZER INC-2006152344

PATIENT
  Age: 67 Year
  Sex: Female

DRUGS (10)
  1. CARDENALIN [Suspect]
     Indication: HYPERTENSION
     Dosage: DAILY DOSE:1MG-FREQ:ONCE DAILY
     Route: 048
  2. CARDENALIN [Suspect]
     Dosage: DAILY DOSE:2MG-FREQ:ONCE DAILY
     Route: 048
     Dates: start: 20060605, end: 20061001
  3. CARDENALIN [Suspect]
     Dosage: DAILY DOSE:1MG-FREQ:ONCE DAILY
     Route: 048
  4. NU LOTAN [Suspect]
     Indication: HYPERTENSION
     Route: 048
  5. NU LOTAN [Suspect]
     Route: 048
  6. ARTIST [Suspect]
     Indication: HYPERTENSION
     Route: 048
  7. ARTIST [Suspect]
     Route: 048
  8. CARVEDILOL [Suspect]
     Indication: HYPERTENSION
     Route: 048
     Dates: start: 20060605, end: 20061102
  9. ADALAT [Suspect]
     Indication: HYPERTENSION
     Route: 048
  10. ADALAT [Suspect]
     Dosage: DAILY DOSE:10MG-FREQ:ONCE DAILY
     Route: 048

REACTIONS (3)
  - DIZZINESS [None]
  - EYELID PTOSIS [None]
  - FLUSHING [None]
